FAERS Safety Report 10144125 (Version 1)
Quarter: 2014Q2

REPORT INFORMATION
  Report Type: Spontaneous
  Country: US (occurrence: US)
  Receive Date: 20140430
  Receipt Date: 20140430
  Transmission Date: 20141212
  Serious: Yes (Hospitalization, Other)
  Sender: FDA-Public Use
  Company Number: US-ACTAVIS-2014-08385

PATIENT
  Age: 24 Year
  Sex: Female
  Weight: 73 kg

DRUGS (1)
  1. GENERESS FE (WATSON LABORATORIES) [Suspect]
     Indication: ORAL CONTRACEPTION
     Dosage: 1 DF, DAILY
     Route: 048
     Dates: start: 201310, end: 20131231

REACTIONS (5)
  - Cerebral venous thrombosis [Not Recovered/Not Resolved]
  - Brain operation [Unknown]
  - Aphasia [Unknown]
  - Cerebrovascular accident [Unknown]
  - Brain oedema [Unknown]
